FAERS Safety Report 4333750-6 (Version None)
Quarter: 2004Q2

REPORT INFORMATION
  Report Type: 
  Country: None (occurrence: None)
  Receive Date: 20040406
  Receipt Date: 20040406
  Transmission Date: 20050107
  Serious: Yes (Hospitalization)
  Sender: FDA-Public Use
  Company Number: None

PATIENT
  Sex: Female
  Weight: 87 kg

DRUGS (3)
  1. CYTARABINE [Suspect]
     Indication: MYELOID LEUKAEMIA
     Dosage: CYTARABINE 1500MG/M2 INTRAVENOUS
     Route: 042
     Dates: start: 20040317, end: 20040323
  2. NEUPOGEN [Suspect]
     Dosage: NEUPOGEN 480MCG SUBCUTANEOUS
     Route: 058
     Dates: start: 20040324, end: 20040402
  3. ACYCLOVIR [Concomitant]

REACTIONS (3)
  - HYPERSENSITIVITY [None]
  - NEUTROPENIA [None]
  - PYREXIA [None]
